FAERS Safety Report 20011567 (Version 1)
Quarter: 2021Q4

REPORT INFORMATION
  Report Type: Spontaneous
  Country: US (occurrence: US)
  Receive Date: 20211029
  Receipt Date: 20211029
  Transmission Date: 20220303
  Serious: Yes (Life-Threatening, Hospitalization, Other)
  Sender: FDA-Public Use
  Company Number: US-MLMSERVICE-20211014-3169671-1

PATIENT
  Age: 88 Year
  Sex: Male

DRUGS (2)
  1. AMIODARONE [Interacting]
     Active Substance: AMIODARONE
     Indication: Atrial fibrillation
     Dosage: LONG TERM
     Route: 065
  2. OXYGEN [Interacting]
     Active Substance: OXYGEN
     Indication: Oxygen therapy
     Dosage: BILEVEL POSITIVE AIRWAY PRESSURE (BIPAP) WITH 100% FIO2
     Route: 065

REACTIONS (5)
  - Drug interaction [Recovering/Resolving]
  - Bronchiectasis [Recovering/Resolving]
  - Acute respiratory failure [Recovering/Resolving]
  - Acute respiratory distress syndrome [Recovering/Resolving]
  - Pulmonary toxicity [Recovering/Resolving]
